FAERS Safety Report 4479612-5 (Version None)
Quarter: 2004Q4

REPORT INFORMATION
  Report Type: 
  Country: None (occurrence: None)
  Receive Date: 20041015
  Receipt Date: 20041006
  Transmission Date: 20050328
  Serious: Yes (Other)
  Sender: FDA-Public Use
  Company Number: 200414794BCC

PATIENT
  Age: 71 Year
  Sex: Female
  Weight: 83.9154 kg

DRUGS (3)
  1. MILK OF MAGNESIA TAB [Suspect]
     Indication: CONSTIPATION
     Dosage: 60 ML, QD, ORAL
     Route: 048
  2. INDERAL [Concomitant]
  3. SYNTHROID [Concomitant]

REACTIONS (2)
  - HEART RATE INCREASED [None]
  - HEART RATE IRREGULAR [None]
